FAERS Safety Report 4793582-1 (Version None)
Quarter: 2005Q4

REPORT INFORMATION
  Report Type: 
  Country: None (occurrence: None)
  Receive Date: 20051006
  Receipt Date: 20050930
  Transmission Date: 20060501
  Serious: Yes (Death)
  Sender: FDA-Public Use
  Company Number: USA-2005-0021369

PATIENT
  Age: 46 Year
  Sex: Female
  Weight: 94.3 kg

DRUGS (5)
  1. OXYCODONE HCL [Suspect]
  2. CITALOPRAM (CITALOPRAM) [Suspect]
  3. MIRTAZAPINE [Suspect]
  4. PROPOXYPHENE HCL [Suspect]
  5. PROMETHAZINE [Suspect]

REACTIONS (10)
  - ACCIDENTAL DEATH [None]
  - ARTERIOSCLEROSIS [None]
  - ARTERIOSCLEROSIS CORONARY ARTERY [None]
  - CARDIAC DISORDER [None]
  - COR PULMONALE [None]
  - DRUG TOXICITY [None]
  - EMPHYSEMA [None]
  - LOSS OF CONSCIOUSNESS [None]
  - LUNG DISORDER [None]
  - OBESITY [None]
